FAERS Safety Report 4364657-6 (Version None)
Quarter: 2004Q2

REPORT INFORMATION
  Report Type: 
  Country: None (occurrence: None)
  Receive Date: 20040521
  Receipt Date: 20040503
  Transmission Date: 20050107
  Serious: Yes (Life-Threatening, Other)
  Sender: FDA-Public Use
  Company Number: USA040566732

PATIENT
  Age: 26 Year
  Sex: Male

DRUGS (1)
  1. HUMATROPE [Suspect]

REACTIONS (1)
  - WEGENER'S GRANULOMATOSIS [None]
